FAERS Safety Report 17621314 (Version 1)
Quarter: 2020Q2

REPORT INFORMATION
  Report Type: Spontaneous
  Country: US (occurrence: US)
  Receive Date: 20200402
  Receipt Date: 20200402
  Transmission Date: 20200713
  Serious: Yes (Hospitalization)
  Sender: FDA-Public Use
  Company Number: None

PATIENT
  Age: 63 Year
  Sex: Male

DRUGS (5)
  1. ABIRATERONE ACETATE. [Suspect]
     Active Substance: ABIRATERONE ACETATE
     Indication: PROSTATE CANCER
     Route: 048
     Dates: start: 20200207
  2. PREDNISONE. [Concomitant]
     Active Substance: PREDNISONE
  3. BD PEN NEEDLE [Concomitant]
  4. ACCU-CHEK [Concomitant]
  5. FAST CLIX [Concomitant]

REACTIONS (3)
  - Hypertension [None]
  - Dizziness [None]
  - Epistaxis [None]
